FAERS Safety Report 13726073 (Version 1)
Quarter: 2017Q3

REPORT INFORMATION
  Report Type: Spontaneous
  Country: US (occurrence: US)
  Receive Date: 20170707
  Receipt Date: 20170707
  Transmission Date: 20171127
  Serious: Yes (Disabling)
  Sender: FDA-Public Use
  Company Number: None

PATIENT
  Age: 58 Year
  Sex: Male
  Weight: 54.9 kg

DRUGS (6)
  1. CIPROFLOXACIN. [Suspect]
     Active Substance: CIPROFLOXACIN
     Indication: IRRITABLE BOWEL SYNDROME
     Dosage: ?          OTHER STRENGTH:MG;QUANTITY:20 TABLET(S);?
     Route: 048
     Dates: start: 20120213, end: 20120214
  2. CIPROFLOXACIN. [Suspect]
     Active Substance: CIPROFLOXACIN
     Indication: DIVERTICULITIS
     Dosage: ?          OTHER STRENGTH:MG;QUANTITY:20 TABLET(S);?
     Route: 048
     Dates: start: 20120213, end: 20120214
  3. CIPROFLOXACIN. [Suspect]
     Active Substance: CIPROFLOXACIN
     Indication: CONSTIPATION
     Dosage: ?          OTHER STRENGTH:MG;QUANTITY:20 TABLET(S);?
     Route: 048
     Dates: start: 20120213, end: 20120214
  4. ZOLPIDEM [Concomitant]
     Active Substance: ZOLPIDEM\ZOLPIDEM TARTRATE
  5. GABAPENTIN. [Concomitant]
     Active Substance: GABAPENTIN
  6. VICODIN [Concomitant]
     Active Substance: ACETAMINOPHEN\HYDROCODONE BITARTRATE

REACTIONS (4)
  - Tendonitis [None]
  - Inflammation [None]
  - Neuropathy peripheral [None]
  - Tendon rupture [None]

NARRATIVE: CASE EVENT DATE: 20120213
